FAERS Safety Report 20479549 (Version 1)
Quarter: 2022Q1

REPORT INFORMATION
  Report Type: Spontaneous
  Country: US (occurrence: US)
  Receive Date: 20220216
  Receipt Date: 20220216
  Transmission Date: 20220423
  Serious: No
  Sender: FDA-Public Use
  Company Number: US-GLAXOSMITHKLINE-US2022AMR024290

PATIENT
  Sex: Female

DRUGS (11)
  1. SHINGRIX [Suspect]
     Active Substance: RECOMBINANT VARICELLA ZOSTER VIRUS (VZV) GLYCOPROTEIN E
     Indication: Prophylaxis
  2. FOLIC ACID [Suspect]
     Active Substance: FOLIC ACID
     Indication: Product used for unknown indication
  3. VITAMIN D3 [Suspect]
     Active Substance: CHOLECALCIFEROL
     Indication: Product used for unknown indication
  4. FLONASE [Suspect]
     Active Substance: FLUTICASONE PROPIONATE
  5. SYNTHROID [Suspect]
     Active Substance: LEVOTHYROXINE SODIUM
     Indication: Product used for unknown indication
  6. PROBIOTICS NOS [Suspect]
     Active Substance: PROBIOTICS NOS
     Indication: Product used for unknown indication
  7. NABUMETONE [Suspect]
     Active Substance: NABUMETONE
     Indication: Product used for unknown indication
  8. CLARITIN-D NOS [Suspect]
     Active Substance: LORATADINE\PSEUDOEPHEDRINE SULFATE
     Indication: Product used for unknown indication
  9. KEVZARA [Suspect]
     Active Substance: SARILUMAB
     Indication: Product used for unknown indication
  10. VITAMINS [Suspect]
     Active Substance: VITAMINS
     Indication: Product used for unknown indication
  11. BENADRYL ALLERGY [Suspect]
     Active Substance: DIPHENHYDRAMINE HYDROCHLORIDE
     Indication: Product used for unknown indication

REACTIONS (6)
  - Illness [Unknown]
  - Coronavirus infection [Unknown]
  - Pain [Recovering/Resolving]
  - Joint swelling [Recovering/Resolving]
  - Arthritis [Recovering/Resolving]
  - Erythema [Recovering/Resolving]
